FAERS Safety Report 12262965 (Version 2)
Quarter: 2016Q2

REPORT INFORMATION
  Report Type: Spontaneous
  Country: US (occurrence: US)
  Receive Date: 20160413
  Receipt Date: 20160627
  Transmission Date: 20160815
  Serious: No
  Sender: FDA-Public Use
  Company Number: US-PFIZER INC-2016167468

PATIENT
  Age: 51 Year
  Sex: Female
  Weight: 38.1 kg

DRUGS (8)
  1. LORAZEPAM. [Concomitant]
     Active Substance: LORAZEPAM
     Indication: ANXIETY
     Dosage: 1MG 4 TIMES A DAY AS NEEDED BY MOUTH
     Route: 048
  2. METHADONE [Concomitant]
     Active Substance: METHADONE HYDROCHLORIDE
     Indication: NEURALGIA
     Dosage: 10MG FOUR TIMES A DAY BY MOUTH
     Route: 048
  3. TYLENOL EXTRA STRENGTH [Concomitant]
     Active Substance: ACETAMINOPHEN
     Indication: BACK PAIN
  4. LYRICA [Suspect]
     Active Substance: PREGABALIN
     Indication: PAIN
  5. TYLENOL EXTRA STRENGTH [Concomitant]
     Active Substance: ACETAMINOPHEN
     Indication: ARTHRITIS
     Dosage: 2 TABLETS 3 TIMES A DAY AS NEEDED BY MOUTH
     Route: 048
  6. LYRICA [Suspect]
     Active Substance: PREGABALIN
     Indication: NEUROPATHY PERIPHERAL
     Dosage: 75 MG, 2X/DAY
     Route: 048
     Dates: start: 20160314
  7. OXYCODONE [Concomitant]
     Active Substance: OXYCODONE
     Indication: BREAKTHROUGH PAIN
     Dosage: 20MG TIMES A DAY AS NEEDED
  8. OXYCONTIN [Concomitant]
     Active Substance: OXYCODONE HYDROCHLORIDE
     Indication: PAIN
     Dosage: 80MG TIMES A DAY BY MOUTH
     Route: 048

REACTIONS (3)
  - Fall [Recovered/Resolved]
  - Dissociation [Not Recovered/Not Resolved]
  - Dysuria [Not Recovered/Not Resolved]

NARRATIVE: CASE EVENT DATE: 20160314
